FAERS Safety Report 12080650 (Version 1)
Quarter: 2016Q1

REPORT INFORMATION
  Report Type: Report from Study
  Country: IT (occurrence: IT)
  Receive Date: 20160216
  Receipt Date: 20160216
  Transmission Date: 20160526
  Serious: Yes (Death, Hospitalization)
  Sender: FDA-Public Use
  Company Number: IT-MYLANLABS-2016M1005799

PATIENT

DRUGS (2)
  1. TRASTUZUMAB [Concomitant]
     Active Substance: TRASTUZUMAB
     Indication: INVASIVE DUCTAL BREAST CARCINOMA
     Dosage: AT STANDARD DOSES
     Route: 065
  2. CAPECITABINE. [Suspect]
     Active Substance: CAPECITABINE
     Indication: INVASIVE DUCTAL BREAST CARCINOMA
     Dosage: DAYS 1-14 IN 21-DAY CYCLES
     Route: 048

REACTIONS (10)
  - Mucosal inflammation [Unknown]
  - Neutropenia [Unknown]
  - Dysphagia [Unknown]
  - Platelet count decreased [Unknown]
  - Leukopenia [Unknown]
  - Multiple organ dysfunction syndrome [Fatal]
  - Palmar-plantar erythrodysaesthesia syndrome [Unknown]
  - Diarrhoea [Unknown]
  - Pyrexia [Unknown]
  - Odynophagia [Unknown]
